FAERS Safety Report 9191325 (Version 1)
Quarter: 2013Q1

REPORT INFORMATION
  Report Type: Other
  Country: GB (occurrence: GB)
  Receive Date: 20130326
  Receipt Date: 20130326
  Transmission Date: 20140127
  Serious: Yes (Life-Threatening)
  Sender: FDA-Public Use
  Company Number: GB-WATSON-2013-05042

PATIENT
  Age: 37 Year
  Sex: Female

DRUGS (6)
  1. DOXAZOSIN MESYLATE (UNKNOWN) [Suspect]
     Indication: BLOOD PRESSURE
     Dosage: 2 MG, DAILY
     Route: 048
     Dates: start: 20130202, end: 20130203
  2. PERINDOPRIL                        /00790702/ [Concomitant]
     Indication: BLOOD PRESSURE
     Dosage: 8 MG, DAILY
     Route: 065
  3. INDAPAMIDE [Concomitant]
     Indication: PRODUCT USED FOR UNKNOWN INDICATION
     Dosage: 2.5 MG, DAILY
     Route: 065
  4. LEVOTHYROXINE [Concomitant]
     Indication: PRODUCT USED FOR UNKNOWN INDICATION
     Dosage: 25 MCG, UNK
     Route: 065
  5. LEVOTHYROXINE [Concomitant]
     Dosage: 75 MCG, DAILY
     Route: 065
  6. CITALOPRAM [Concomitant]
     Indication: PRODUCT USED FOR UNKNOWN INDICATION
     Dosage: 20 MG, DAILY
     Route: 065

REACTIONS (1)
  - Anaphylactic reaction [Recovered/Resolved]
